FAERS Safety Report 17581775 (Version 5)
Quarter: 2020Q3

REPORT INFORMATION
  Report Type: Report from Study
  Country: CA (occurrence: CA)
  Receive Date: 20200325
  Receipt Date: 20200930
  Transmission Date: 20201102
  Serious: Yes (Other)
  Sender: FDA-Public Use
  Company Number: CA-JNJFOC-20191105867

PATIENT
  Age: 65 Year
  Sex: Female
  Weight: 72.9 kg

DRUGS (2)
  1. REMICADE [Suspect]
     Active Substance: INFLIXIMAB
     Indication: CROHN^S DISEASE
     Route: 042
     Dates: start: 20111011
  2. REMICADE [Suspect]
     Active Substance: INFLIXIMAB
     Route: 042

REACTIONS (7)
  - Back pain [Unknown]
  - Crohn^s disease [Not Recovered/Not Resolved]
  - Mastectomy [Unknown]
  - Urinary tract infection [Not Recovered/Not Resolved]
  - Chest pain [Unknown]
  - Scar [Unknown]
  - Hypersensitivity [Not Recovered/Not Resolved]

NARRATIVE: CASE EVENT DATE: 20200311
